FAERS Safety Report 23566643 (Version 3)
Quarter: 2024Q4

REPORT INFORMATION
  Report Type: Report from Study
  Country: US (occurrence: US)
  Receive Date: 20240226
  Receipt Date: 20241008
  Transmission Date: 20250115
  Serious: Yes (Hospitalization)
  Sender: AMNEAL
  Company Number: US-AMNEAL PHARMACEUTICALS-2023-AMRX-01000

PATIENT
  Sex: Male

DRUGS (1)
  1. CARBIDOPA\LEVODOPA [Suspect]
     Active Substance: CARBIDOPA\LEVODOPA
     Indication: Parkinson^s disease
     Dosage: (61.25-245 MG) TAKE 1 CAPSULES BY MOUTH FOUR TIMES A DAY AT THE TIMES OF 10AM , 2PM, 6PM AND 10PM
     Route: 048

REACTIONS (4)
  - Hospitalisation [Unknown]
  - Urinary tract infection [Unknown]
  - Speech disorder [Unknown]
  - Product dose omission issue [Unknown]
